FAERS Safety Report 6554469-7 (Version None)
Quarter: 2010Q1

REPORT INFORMATION
  Report Type: 
  Country: None (occurrence: None)
  Receive Date: 20100125
  Receipt Date: 20100125
  Transmission Date: 20100710
  Serious: Yes (Other)
  Sender: FDA-Public Use
  Company Number: None

PATIENT
  Age: 63 Year
  Sex: Male
  Weight: 98.4 kg

DRUGS (7)
  1. BYETTA [Suspect]
     Indication: TYPE 2 DIABETES MELLITUS
     Dosage: TWICE A DAY; SUBCUTANEOUS TWICE A DAY; SUBCUTANEOUS
     Route: 058
     Dates: start: 20090409, end: 20090415
  2. BYETTA [Suspect]
     Indication: TYPE 2 DIABETES MELLITUS
     Dosage: TWICE A DAY; SUBCUTANEOUS TWICE A DAY; SUBCUTANEOUS
     Route: 058
     Dates: end: 20090924
  3. OPTICLICK (OPTICLICK) / UNKNOWN / UNKNOWN [Suspect]
     Indication: TYPE 2 DIABETES MELLITUS
     Dosage: TWICE A DAY
     Dates: start: 20090409, end: 20090924
  4. SIMVASTATIN [Concomitant]
  5. EZETIMIBE [Concomitant]
  6. VENLAFAXINE [Concomitant]
  7. METFORMIN HCL [Concomitant]

REACTIONS (4)
  - COGNITIVE DISORDER [None]
  - DISTURBANCE IN ATTENTION [None]
  - DIZZINESS [None]
  - FEELING ABNORMAL [None]
